FAERS Safety Report 7782153-0 (Version None)
Quarter: 2011Q3

REPORT INFORMATION
  Report Type: 
  Country: None (occurrence: None)
  Receive Date: 20110927
  Receipt Date: 20110912
  Transmission Date: 20111222
  Serious: Yes (Hospitalization)
  Sender: FDA-Public Use
  Company Number: US-SANOFI-AVENTIS-2011SA062341

PATIENT
  Age: 69 Year
  Sex: Male

DRUGS (10)
  1. GLYBURIDE [Concomitant]
     Route: 048
     Dates: start: 20070701
  2. MOTRIN [Concomitant]
  3. LANTUS [Suspect]
     Indication: TYPE 2 DIABETES MELLITUS
     Dosage: DOSE:10 UNIT(S)
     Route: 058
     Dates: start: 20070601
  4. HYDROCHLOROTHIAZIDE [Concomitant]
     Route: 048
  5. OMEPRAZOLE [Concomitant]
     Route: 048
  6. ASPIRIN [Concomitant]
  7. GLYBURIDE [Concomitant]
     Route: 048
     Dates: end: 20070701
  8. LANTUS [Suspect]
     Dosage: DOSE:22 UNIT(S)
     Route: 058
  9. SOLOSTAR [Suspect]
     Indication: TYPE 2 DIABETES MELLITUS
     Dates: start: 20070601
  10. WARFARIN SODIUM [Concomitant]
     Route: 048

REACTIONS (8)
  - FALL [None]
  - PNEUMONIA [None]
  - BLOOD GLUCOSE INCREASED [None]
  - FATIGUE [None]
  - GLYCOSYLATED HAEMOGLOBIN INCREASED [None]
  - MALAISE [None]
  - DIZZINESS [None]
  - ASTHENIA [None]
